FAERS Safety Report 8248819-3 (Version None)
Quarter: 2012Q2

REPORT INFORMATION
  Report Type: 
  Country: None (occurrence: None)
  Receive Date: 20120401
  Receipt Date: 20120323
  Transmission Date: 20120825
  Serious: Yes (Hospitalization, Other)
  Sender: FDA-Public Use
  Company Number: PHFR2012GB001093

PATIENT
  Sex: Male

DRUGS (10)
  1. MADOPAR [Concomitant]
     Indication: PARKINSON'S DISEASE
     Dosage: 62.5 MG, UNK
  2. CLOZARIL [Suspect]
     Indication: HALLUCINATION
     Dosage: UNK UKN, UNK
     Route: 048
     Dates: start: 20051021, end: 20120205
  3. ACETAMINOPHEN [Concomitant]
     Indication: PAIN
  4. CODEINE PHOSPHATE [Concomitant]
     Indication: PAIN
     Dosage: 30-60 MG, QID
  5. SIMVASTATIN [Concomitant]
     Indication: BLOOD CHOLESTEROL
     Dosage: 40 MG, UNK
  6. EPHEDRINE [Concomitant]
     Indication: BLOOD PRESSURE
     Dosage: 15 MG, THREE TIMES
  7. PRAMIPEXOLE DIHYDROCHLORIDE [Concomitant]
     Indication: PARKINSON'S DISEASE
     Dosage: 0.36 MG, UNK
  8. LANSOPRAZOLE [Concomitant]
     Dosage: 30 MG, UNK
  9. CLOZARIL [Suspect]
     Dosage: 12.5 MG, UNK
     Route: 048
  10. GABAPENTIN [Concomitant]
     Indication: PAIN
     Dosage: 100 MG, UNK

REACTIONS (8)
  - FALL [None]
  - ALTERED STATE OF CONSCIOUSNESS [None]
  - CIRCULATORY COLLAPSE [None]
  - OSTEOPOROSIS [None]
  - PARKINSON'S DISEASE [None]
  - PLATELET COUNT DECREASED [None]
  - LOWER RESPIRATORY TRACT INFECTION [None]
  - MALAISE [None]
